FAERS Safety Report 5531298-4 (Version None)
Quarter: 2007Q4

REPORT INFORMATION
  Report Type: 
  Country: None (occurrence: None)
  Receive Date: 20071128
  Receipt Date: 20071113
  Transmission Date: 20080405
  Serious: Yes (Other)
  Sender: FDA-Public Use
  Company Number: 100#08#2007-04685

PATIENT
  Age: 65 Year
  Sex: Male

DRUGS (1)
  1. CARVEDILOL [Suspect]
     Indication: HYPERTENSION
     Dosage: 3.125 MG

REACTIONS (1)
  - CUTANEOUS VASCULITIS [None]
